FAERS Safety Report 8180153-2 (Version None)
Quarter: 2012Q1

REPORT INFORMATION
  Report Type: 
  Country: None (occurrence: None)
  Receive Date: 20120228
  Receipt Date: 20120206
  Transmission Date: 20120608
  Serious: Yes (Death)
  Sender: FDA-Public Use
  Company Number: 2012PROUSA01068

PATIENT
  Age: 71 Year
  Sex: Male
  Weight: 71.7 kg

DRUGS (10)
  1. ZOFRAN /00955301/ (ONDANSETRON) [Concomitant]
  2. POTASSIUM CHLORIDE [Concomitant]
  3. PROVENGE [Suspect]
  4. DEXAMETHASONE [Concomitant]
  5. PROVENGE [Suspect]
     Indication: PROSTATE CANCER METASTATIC
     Dosage: 250 ML, SINGLE
     Dates: start: 20101223, end: 20101223
  6. FENTANYL [Concomitant]
  7. HYDROCODONE BITARTRATE [Concomitant]
  8. COMPAZINE /00013302/ (PROCHLORPERAZINE EDISYLATE) [Concomitant]
  9. PROVENGE [Suspect]
     Indication: PROSTATE CANCER METASTATIC
     Dosage: 250 ML, SINGLE, INTRAVENOUS, 250 ML, SINGLE, INTRAVENOUS
     Route: 042
     Dates: start: 20101105, end: 20101105
  10. PROVENGE [Suspect]
     Indication: PROSTATE CANCER METASTATIC
     Dosage: 250 ML, SINGLE, INTRAVENOUS, 250 ML, SINGLE, INTRAVENOUS
     Route: 042
     Dates: start: 20101209, end: 20101209

REACTIONS (3)
  - REFUSAL OF TREATMENT BY PATIENT [None]
  - NEOPLASM PROGRESSION [None]
  - PROSTATE CANCER METASTATIC [None]
